FAERS Safety Report 9643964 (Version 2)
Quarter: 2014Q2

REPORT INFORMATION
  Report Type: Spontaneous
  Country: IT (occurrence: IT)
  Receive Date: 20131024
  Receipt Date: 20140403
  Transmission Date: 20141212
  Serious: Yes (Other)
  Sender: FDA-Public Use
  Company Number: IT-ABBVIE-13P-083-1161373-00

PATIENT
  Age: 29 Year
  Sex: Male

DRUGS (3)
  1. MACLADIN TM [Suspect]
     Indication: ANTIBIOTIC PROPHYLAXIS
     Route: 048
     Dates: start: 20130915, end: 20130918
  2. MACLADIN TM [Suspect]
     Indication: TOOTH EXTRACTION
  3. VENTOLIN [Concomitant]
     Indication: ASTHMA
     Route: 055

REACTIONS (7)
  - Dyspnoea [Recovering/Resolving]
  - Asthenia [Recovering/Resolving]
  - Chest discomfort [Recovering/Resolving]
  - Malaise [Recovering/Resolving]
  - Vertigo [Recovering/Resolving]
  - Discomfort [Unknown]
  - Dizziness [Unknown]
